FAERS Safety Report 9890345 (Version 1)
Quarter: 2014Q1

REPORT INFORMATION
  Report Type: Spontaneous
  Country: IT (occurrence: IT)
  Receive Date: 20140212
  Receipt Date: 20140212
  Transmission Date: 20141002
  Serious: Yes (Hospitalization)
  Sender: FDA-Public Use
  Company Number: IT-ASTRAZENECA-2014SE08018

PATIENT
  Age: 26770 Day
  Sex: Male

DRUGS (2)
  1. TENORETIC [Suspect]
     Indication: HYPERTENSION
     Dosage: 100MG + 25MG TABLETS, ONE DOSAGE FORM DAILY
     Route: 048
     Dates: start: 20130101, end: 20140109
  2. CARDURA (DOXAZOSIN) [Concomitant]

REACTIONS (2)
  - Atrial fibrillation [Recovering/Resolving]
  - Hypokalaemia [Recovering/Resolving]
